FAERS Safety Report 17917805 (Version 5)
Quarter: 2020Q4

REPORT INFORMATION
  Report Type: Report from Study
  Country: CN (occurrence: CN)
  Receive Date: 20200619
  Receipt Date: 20201102
  Transmission Date: 20210113
  Serious: Yes (Hospitalization)
  Sender: FDA-Public Use
  Company Number: CN-PFIZER INC-2020220940

PATIENT
  Age: 68 Year
  Sex: Female
  Weight: 85 kg

DRUGS (14)
  1. VITAMIN A AND D [Concomitant]
     Active Substance: LANOLIN\PETROLATUM
     Indication: MUSCLE SPASMS
     Dosage: 2 GRAIN, 1X/DAY
     Route: 048
     Dates: start: 2014
  2. ASPIRIN [ACETYLSALICYLIC ACID] [Concomitant]
     Active Substance: ASPIRIN
     Indication: HYPERTENSION
     Dosage: 75 MG, 1X/DAY, ENTERIC-COATED TABLETS
     Route: 048
     Dates: start: 2004
  3. PALBOCICLIB [Suspect]
     Active Substance: PALBOCICLIB
     Indication: BREAST CANCER
     Dosage: UNK, 1X/DAY
     Route: 048
     Dates: start: 20151127, end: 20170404
  4. IRBESARTAN. [Concomitant]
     Active Substance: IRBESARTAN
     Indication: HYPERTENSION
     Dosage: 0.15 G, 2X/DAY
     Route: 048
     Dates: start: 20151113
  5. SIMVASTATIN. [Concomitant]
     Active Substance: SIMVASTATIN
     Indication: CORONARY ARTERY DISEASE
     Dosage: 10 MG, 1X/DAY
     Route: 048
     Dates: start: 2014
  6. VITAMIN E [Concomitant]
     Active Substance: .ALPHA.-TOCOPHEROL
     Indication: CORONARY ARTERY DISEASE
     Dosage: 10 MG, 2X/DAY
     Route: 048
     Dates: start: 2014
  7. LETROZOLE. [Suspect]
     Active Substance: LETROZOLE
     Indication: BREAST CANCER
     Dosage: 2.5 MG, 1X/DAY
     Route: 048
     Dates: start: 20151127, end: 20200526
  8. METOPROLOL TARTRATE. [Concomitant]
     Active Substance: METOPROLOL TARTRATE
     Indication: HYPERTENSION
     Dosage: 25 MG, 2X/DAY
     Route: 048
     Dates: start: 2012
  9. HYDROCHLOROTHIAZIDE. [Concomitant]
     Active Substance: HYDROCHLOROTHIAZIDE
     Indication: HYPERTENSION
     Dosage: 12.5 MG, 1X/DAY
     Route: 048
     Dates: start: 20200327
  10. ISOSORBIDE MONONITRATE. [Concomitant]
     Active Substance: ISOSORBIDE MONONITRATE
     Indication: CORONARY ARTERY DISEASE
     Dosage: 5 MG, 1X/DAY
     Route: 048
     Dates: start: 2013
  11. PALBOCICLIB [Suspect]
     Active Substance: PALBOCICLIB
     Dosage: UNK, 1X/DAY
     Route: 048
     Dates: start: 20170413, end: 20200319
  12. PALBOCICLIB [Suspect]
     Active Substance: PALBOCICLIB
     Dosage: UNK, 1X/DAY
     Route: 048
     Dates: start: 20200330, end: 20200519
  13. ASPIRIN [ACETYLSALICYLIC ACID] [Concomitant]
     Active Substance: ASPIRIN
     Indication: CORONARY ARTERY DISEASE
  14. LEVAMLODIPINE BESYLATE [Concomitant]
     Active Substance: LEVAMLODIPINE BESYLATE
     Indication: HYPERTENSION
     Dosage: 2.5 MG, 1X/DAY
     Route: 048
     Dates: start: 20200327

REACTIONS (2)
  - Second primary malignancy [Not Recovered/Not Resolved]
  - Acute myeloid leukaemia [Not Recovered/Not Resolved]

NARRATIVE: CASE EVENT DATE: 20200526
